FAERS Safety Report 14302927 (Version 2)
Quarter: 2018Q2

REPORT INFORMATION
  Report Type: Spontaneous
  Country: JP (occurrence: JP)
  Receive Date: 20171219
  Receipt Date: 20180525
  Transmission Date: 20180711
  Serious: No
  Sender: FDA-Public Use
  Company Number: JP-OTSUKA-2017_027702AA

PATIENT
  Age: 67 Year
  Sex: Female

DRUGS (6)
  1. SAMSCA [Suspect]
     Active Substance: TOLVAPTAN
     Indication: CONGENITAL CYSTIC KIDNEY DISEASE
     Dosage: 37.5 MG/DAY, UNK
     Route: 048
     Dates: start: 20170621, end: 20170919
  2. SAMSCA [Suspect]
     Active Substance: TOLVAPTAN
     Dosage: 30 MG/DAY, UNK
     Route: 048
     Dates: start: 20170524, end: 20170620
  3. AMLODIN [Suspect]
     Active Substance: AMLODIPINE BESYLATE
     Indication: PRODUCT USED FOR UNKNOWN INDICATION
     Dosage: 5 MG, QD
     Route: 048
  4. PRAVASTATIN SODIUM. [Concomitant]
     Active Substance: PRAVASTATIN SODIUM
     Indication: PRODUCT USED FOR UNKNOWN INDICATION
     Dosage: 10 MG, QD
     Route: 048
  5. SAMSCA [Suspect]
     Active Substance: TOLVAPTAN
     Dosage: 22.5 MG/DAY, UNK
     Route: 048
     Dates: start: 20170508, end: 20170523
  6. SAMSCA [Suspect]
     Active Substance: TOLVAPTAN
     Dosage: 45.0 MG/DAY, UNK
     Route: 048
     Dates: start: 20170920, end: 20171128

REACTIONS (1)
  - Hepatic function abnormal [Not Recovered/Not Resolved]

NARRATIVE: CASE EVENT DATE: 20170719
